FAERS Safety Report 9522540 (Version 2)
Quarter: 2013Q3

REPORT INFORMATION
  Report Type: Spontaneous
  Country: PL (occurrence: None)
  Receive Date: 20130829
  Receipt Date: 20130911
  Transmission Date: 20140515
  Serious: Yes (Other)
  Sender: FDA-Public Use
  Company Number: 2013037652

PATIENT
  Age: 13 Year
  Sex: Female

DRUGS (2)
  1. PRIVIGEN (IMMUNE GLOBULIN INTRAVENOUS (HUMAN) 10% LIQUID) [Suspect]
     Indication: IMMUNODEFICIENCY COMMON VARIABLE
     Dates: start: 20121018
  2. TAROMENTIN / 00756801 / AUGMENTIN / 00756801 [Concomitant]

REACTIONS (10)
  - Circulatory collapse [None]
  - Hypersensitivity [None]
  - Chills [None]
  - Chills [None]
  - Abdominal pain [None]
  - Tremor [None]
  - Livedo reticularis [None]
  - Tonsillar hypertrophy [None]
  - Hypotension [None]
  - Lymphadenopathy [None]
